FAERS Safety Report 22262217 (Version 3)
Quarter: 2023Q2

REPORT INFORMATION
  Report Type: Report from Study
  Country: US (occurrence: US)
  Receive Date: 20230428
  Receipt Date: 20230512
  Transmission Date: 20230721
  Serious: Yes (Hospitalization)
  Sender: FDA-Public Use
  Company Number: US-AMGEN-USACT2023071201

PATIENT
  Age: 68 Year
  Sex: Male
  Weight: 77.7 kg

DRUGS (4)
  1. SOTORASIB [Suspect]
     Active Substance: SOTORASIB
     Indication: Pancreatic carcinoma
     Dosage: 960 MILLIGRAM
     Route: 048
     Dates: start: 20230221
  2. SOTORASIB [Suspect]
     Active Substance: SOTORASIB
     Indication: K-ras gene mutation
  3. RMC-4630 [Suspect]
     Active Substance: RMC-4630
     Indication: Pancreatic carcinoma
     Dosage: 200 MILLIGRAM
     Route: 048
     Dates: start: 20230221
  4. RMC-4630 [Suspect]
     Active Substance: RMC-4630
     Indication: K-ras gene mutation

REACTIONS (1)
  - Gastrointestinal oedema [Not Recovered/Not Resolved]

NARRATIVE: CASE EVENT DATE: 20230422
